FAERS Safety Report 8099622-9 (Version None)
Quarter: 2012Q1

REPORT INFORMATION
  Report Type: 
  Country: None (occurrence: None)
  Receive Date: 20120131
  Receipt Date: 20120126
  Transmission Date: 20120608
  Serious: Yes (Other)
  Sender: FDA-Public Use
  Company Number: GB-PFIZER INC-2012015005

PATIENT
  Age: 63 Year
  Sex: Male

DRUGS (14)
  1. RAMIPRIL [Suspect]
     Dosage: 7.5 MG- 5MG EVERY MORNING, 2.5MG EVERY EVENING
     Route: 048
  2. RAMIPRIL [Suspect]
     Dosage: 5 MG, EVERY MORNING
     Route: 048
  3. COLCHICINE [Concomitant]
     Dosage: UNK
  4. LANSOPRAZOLE [Concomitant]
     Dosage: UNK
  5. PREDNISOLONE [Concomitant]
     Dosage: UNK
  6. DIGOXIN [Concomitant]
     Dosage: UNK
  7. LOPRAZOLAM [Concomitant]
     Dosage: UNK
  8. ALLOPURINOL [Concomitant]
     Dosage: UNK
  9. BISOPROLOL [Concomitant]
     Dosage: UNK
  10. WARFARIN [Concomitant]
     Dosage: UNK
  11. SIMVASTATIN [Concomitant]
     Dosage: UNK
  12. TRAMADOL [Concomitant]
     Dosage: UNK
  13. ACETAMINOPHEN AND CODEINE PHOSPHATE [Concomitant]
     Dosage: UNK
  14. FUROSEMIDE [Concomitant]
     Dosage: UNK

REACTIONS (1)
  - GOUT [None]
